FAERS Safety Report 13678318 (Version 1)
Quarter: 2017Q2

REPORT INFORMATION
  Report Type: Spontaneous
  Country: US (occurrence: US)
  Receive Date: 20170622
  Receipt Date: 20170622
  Transmission Date: 20170830
  Serious: No
  Sender: FDA-Public Use
  Company Number: US-BAUSCH-BL-2017-001284

PATIENT
  Age: 65 Year
  Sex: Male
  Weight: 110.32 kg

DRUGS (4)
  1. PROVENGE [Suspect]
     Active Substance: SIPULEUCEL-T
     Route: 042
     Dates: start: 20161219, end: 20161219
  2. PROVENGE [Suspect]
     Active Substance: SIPULEUCEL-T
     Route: 042
     Dates: start: 20161205, end: 20161219
  3. PROVENGE [Suspect]
     Active Substance: SIPULEUCEL-T
     Indication: PROSTATE CANCER
     Route: 042
     Dates: start: 20161107, end: 20161107
  4. PROVENGE [Suspect]
     Active Substance: SIPULEUCEL-T
     Dates: start: 20161118, end: 20161205

REACTIONS (1)
  - Culture positive [Recovered/Resolved]

NARRATIVE: CASE EVENT DATE: 20161120
